FAERS Safety Report 13235105 (Version 1)
Quarter: 2017Q1

REPORT INFORMATION
  Report Type: Spontaneous
  Country: FR (occurrence: FR)
  Receive Date: 20170215
  Receipt Date: 20170215
  Transmission Date: 20170428
  Serious: Yes (Hospitalization)
  Sender: FDA-Public Use
  Company Number: FR-PFIZER INC-2017062517

PATIENT
  Age: 81 Year
  Sex: Female

DRUGS (13)
  1. LYRICA [Suspect]
     Active Substance: PREGABALIN
     Indication: NEURALGIA
     Dosage: 25 MG, 3X/DAY
     Route: 048
     Dates: start: 20161017
  2. LYRICA [Suspect]
     Active Substance: PREGABALIN
     Dosage: 25 MG, 2X/DAY IN THE AFTERNOON AND IN THE EVENING
     Route: 048
  3. PANTOPRAZOLE [Concomitant]
     Active Substance: PANTOPRAZOLE SODIUM
     Dosage: 40 UNK, 1X/DAY IN THE EVENING
     Route: 048
  4. FLIXOTIDE [Concomitant]
     Active Substance: FLUTICASONE PROPIONATE
     Dosage: 0.25 UNK, 2X/DAY IN THE MORNING AND IN THE EVENING
     Route: 055
  5. DUPHALAC [Concomitant]
     Active Substance: LACTULOSE
     Dosage: UNK UNK, AS NEEDED
  6. PARACETAMOL [Concomitant]
     Active Substance: ACETAMINOPHEN
  7. LASILIX FAIBLE [Concomitant]
     Active Substance: FUROSEMIDE
     Dosage: 20 MG, 1X/DAY IN THE MORNING
     Route: 048
  8. IMOVANE [Suspect]
     Active Substance: ZOPICLONE
     Indication: INSOMNIA
     Dosage: 3.75 MG, AS NEEDED IN THE EVENING
     Route: 048
     Dates: start: 20161017
  9. ZAMUDOL [Concomitant]
     Active Substance: TRAMADOL HYDROCHLORIDE
     Dosage: ONE IN THE MORNING AND ONE IN THE EVENING
     Route: 048
  10. ESCITALOPRAM [Concomitant]
     Active Substance: ESCITALOPRAM OXALATE
     Dosage: 5 UNK, 1X/DAY IN THE MORNING
     Route: 048
  11. LYRICA [Suspect]
     Active Substance: PREGABALIN
     Dosage: 25 MG IN THE MORNING AND AT NOON AND 50 MG IN THE EVENING
     Route: 048
  12. SEREVENT DISKUS [Concomitant]
     Active Substance: SALMETEROL XINAFOATE
     Dosage: 1 DF, 2X/DAY  IN THE MORNING AND IN THE EVENING
  13. TARDYFERON [Concomitant]
     Active Substance: FERROUS SULFATE
     Dosage: 4 UNK, 2X/DAY THE MORNING AND IN THE EVENING
     Route: 048

REACTIONS (5)
  - Forearm fracture [Recovering/Resolving]
  - Pain [Unknown]
  - Condition aggravated [Unknown]
  - Dizziness [Unknown]
  - Fall [Recovering/Resolving]

NARRATIVE: CASE EVENT DATE: 20161029
